FAERS Safety Report 4889368-X (Version None)
Quarter: 2006Q1

REPORT INFORMATION
  Report Type: 
  Country: None (occurrence: None)
  Receive Date: 20060120
  Receipt Date: 20060107
  Transmission Date: 20060701
  Serious: Yes (Other)
  Sender: FDA-Public Use
  Company Number: 2005142463

PATIENT
  Age: 56 Year
  Sex: Female

DRUGS (11)
  1. NEURONTIN [Suspect]
     Indication: NEURALGIA
     Dosage: 100 MG (100 MG, 1 IN 1 D); ORAL
     Route: 048
     Dates: start: 20050814, end: 20050101
  2. EFFEXOR [Concomitant]
  3. ULTRAM [Concomitant]
  4. LASIX [Concomitant]
  5. LISINOPRIL [Concomitant]
  6. SYNTHROID [Concomitant]
  7. POTASSIUM CHLORIDE [Concomitant]
  8. NEXIUM [Concomitant]
  9. SKELAXIN [Concomitant]
  10. ASPIRIN [Concomitant]
  11. OSCAL (CALCIUM CARBONATE) [Concomitant]

REACTIONS (1)
  - DRUG HYPERSENSITIVITY [None]
